FAERS Safety Report 5387634-5 (Version None)
Quarter: 2007Q3

REPORT INFORMATION
  Report Type: 
  Country: None (occurrence: None)
  Receive Date: 20070712
  Receipt Date: 20070712
  Transmission Date: 20080115
  Serious: No
  Sender: FDA-Public Use
  Company Number: None

PATIENT

DRUGS (1)
  1. CATAPRES-TTS-2 [Suspect]

REACTIONS (3)
  - APPLICATION SITE ERYTHEMA [None]
  - DERMATITIS CONTACT [None]
  - PHARMACEUTICAL PRODUCT COMPLAINT [None]
